FAERS Safety Report 15697241 (Version 1)
Quarter: 2018Q4

REPORT INFORMATION
  Report Type: Spontaneous
  Country: GB (occurrence: GB)
  Receive Date: 20181206
  Receipt Date: 20181206
  Transmission Date: 20190205
  Serious: Yes (Other)
  Sender: FDA-Public Use
  Company Number: GB-MYLANLABS-2018M1090806

PATIENT
  Sex: Male

DRUGS (1)
  1. KLACID 250MG/5ML GRANULES FOR ORAL SUSPENSION [Suspect]
     Active Substance: CLARITHROMYCIN
     Indication: PNEUMONIA
     Dosage: 2.5 MILLILITER, BID

REACTIONS (1)
  - Drug ineffective [Recovered/Resolved]
